FAERS Safety Report 11829694 (Version 2)
Quarter: 2016Q1

REPORT INFORMATION
  Report Type: Spontaneous
  Country: US (occurrence: US)
  Receive Date: 20151212
  Receipt Date: 20160201
  Transmission Date: 20160525
  Serious: No
  Sender: FDA-Public Use
  Company Number: US-009507513-1512USA001122

PATIENT
  Age: 29 Year
  Sex: Female
  Weight: 71.66 kg

DRUGS (2)
  1. NEXPLANON [Suspect]
     Active Substance: ETONOGESTREL
     Indication: CONTRACEPTION
     Dosage: UNK
     Route: 059
     Dates: start: 20150428, end: 20151130
  2. ZOLOFT [Concomitant]
     Active Substance: SERTRALINE HYDROCHLORIDE
     Indication: DEPRESSION
     Dosage: UNK,  FORM : PILL, TOTAL DAILY DOSE 1.5 UNITS UNSPECIFIED,
     Route: 048
     Dates: start: 20151120

REACTIONS (7)
  - Major depression [Unknown]
  - Implant site pruritus [Recovered/Resolved]
  - Urticaria [Recovered/Resolved]
  - Mood swings [Unknown]
  - Depressed mood [Unknown]
  - Anxiety [Unknown]
  - Implant site erythema [Unknown]

NARRATIVE: CASE EVENT DATE: 20150428
